FAERS Safety Report 8953275 (Version 2)
Quarter: 2013Q1

REPORT INFORMATION
  Report Type: Spontaneous
  Country: PE (occurrence: PE)
  Receive Date: 20121206
  Receipt Date: 20130205
  Transmission Date: 20140127
  Serious: Yes (Hospitalization, Other)
  Sender: FDA-Public Use
  Company Number: PE-JNJFOC-20121200242

PATIENT
  Age: 51 Year
  Sex: Male

DRUGS (2)
  1. REMICADE [Suspect]
     Indication: PSORIATIC ARTHROPATHY
     Route: 042
  2. ANTI-TUBERCULOSIS DRUG (NOS) [Concomitant]
     Route: 065

REACTIONS (2)
  - Tuberculosis [Unknown]
  - Hypersensitivity [Unknown]
